FAERS Safety Report 7256408-2 (Version None)
Quarter: 2011Q1

REPORT INFORMATION
  Report Type: 
  Country: None (occurrence: None)
  Receive Date: 20110129
  Receipt Date: 20100720
  Transmission Date: 20110831
  Serious: No
  Sender: FDA-Public Use
  Company Number: US-ABBOTT-10P-163-0658998-00

PATIENT
  Age: 66 Year
  Sex: Male

DRUGS (2)
  1. UNKNOWN DIABETIC MEDICATION [Concomitant]
     Indication: DIABETES MELLITUS
  2. HUMIRA [Suspect]
     Indication: RHEUMATOID ARTHRITIS
     Dates: start: 20100629

REACTIONS (2)
  - BLOOD GLUCOSE DECREASED [None]
  - DIZZINESS [None]
